FAERS Safety Report 7197555-3 (Version None)
Quarter: 2010Q4

REPORT INFORMATION
  Report Type: 
  Country: None (occurrence: None)
  Receive Date: 20101227
  Receipt Date: 20101206
  Transmission Date: 20110411
  Serious: No
  Sender: FDA-Public Use
  Company Number: US-B.I. PHARMACEUTICALS,INC./RIDGEFIELD-2010-BP-13916BP

PATIENT
  Age: 81 Year
  Sex: Male

DRUGS (9)
  1. PRADAXA [Suspect]
     Indication: ATRIAL FIBRILLATION
     Dosage: 300 MG
     Route: 048
     Dates: start: 20101124
  2. PRADAXA [Suspect]
     Indication: CEREBROVASCULAR ACCIDENT PROPHYLAXIS
  3. TRILIPIX [Concomitant]
     Indication: BLOOD CHOLESTEROL
  4. TOPROL-XL [Concomitant]
     Indication: HYPERTENSION
  5. MAVIK [Concomitant]
     Indication: HYPERTENSION
  6. ZETIA [Concomitant]
     Indication: BLOOD CHOLESTEROL INCREASED
  7. ASPIRIN [Concomitant]
  8. LOVAZA [Concomitant]
  9. CALCIUM [Concomitant]

REACTIONS (1)
  - DRY MOUTH [None]
